FAERS Safety Report 17173809 (Version 1)
Quarter: 2019Q4

REPORT INFORMATION
  Report Type: Spontaneous
  Country: TR (occurrence: TR)
  Receive Date: 20191218
  Receipt Date: 20191218
  Transmission Date: 20200122
  Serious: Yes (Hospitalization)
  Sender: FDA-Public Use
  Company Number: TR-UNICHEM PHARMACEUTICALS (USA) INC-UCM201912-000889

PATIENT
  Age: 14 Year
  Sex: Male

DRUGS (1)
  1. DIVALPROEX SODIUM. [Suspect]
     Active Substance: DIVALPROEX SODIUM
     Indication: EPILEPSY
     Dosage: EIGHT TABLETS CONTAINING 500 MG OF  VA

REACTIONS (11)
  - Hyperglycaemia [Recovered/Resolved]
  - Loss of consciousness [Recovered/Resolved]
  - Pupillary reflex impaired [Recovered/Resolved]
  - Hyperlactacidaemia [Recovered/Resolved]
  - Overdose [Recovered/Resolved]
  - Coma [Recovered/Resolved]
  - Respiratory distress [Recovered/Resolved]
  - Hyponatraemia [Recovered/Resolved]
  - Toxicity to various agents [Recovered/Resolved]
  - Hypocalcaemia [Recovered/Resolved]
  - Hyperammonaemia [Recovered/Resolved]
